FAERS Safety Report 6330079-1 (Version None)
Quarter: 2009Q3

REPORT INFORMATION
  Report Type: 
  Country: None (occurrence: None)
  Receive Date: 20090827
  Receipt Date: 20090821
  Transmission Date: 20100115
  Serious: Yes (Hospitalization)
  Sender: FDA-Public Use
  Company Number: US-BIOGENIDEC-2008BI007471

PATIENT
  Age: 55 Year
  Sex: Male

DRUGS (2)
  1. TYSABRI [Suspect]
     Indication: MULTIPLE SCLEROSIS
     Route: 042
     Dates: start: 20070904, end: 20080603
  2. MEDICATION NOS [Concomitant]
     Indication: HYPERTONIC BLADDER

REACTIONS (5)
  - DEHYDRATION [None]
  - HYPOTENSION [None]
  - OPPORTUNISTIC INFECTION [None]
  - PAIN [None]
  - UROSEPSIS [None]
